FAERS Safety Report 23989358 (Version 1)
Quarter: 2024Q2

REPORT INFORMATION
  Report Type: Report from Study
  Country: UA (occurrence: None)
  Receive Date: 20240619
  Receipt Date: 20240619
  Transmission Date: 20240716
  Serious: Yes (Life-Threatening)
  Sender: FDA-Public Use
  Company Number: 2024A139155

PATIENT
  Age: 55 Year
  Sex: Male

DRUGS (3)
  1. BRILINTA [Suspect]
     Active Substance: TICAGRELOR
     Indication: Acute coronary syndrome
     Route: 048
     Dates: start: 202311, end: 202311
  2. BRILINTA [Suspect]
     Active Substance: TICAGRELOR
     Indication: Myocardial infarction
     Route: 048
     Dates: start: 202311, end: 202311
  3. BRILINTA [Suspect]
     Active Substance: TICAGRELOR
     Indication: Arterial thrombosis
     Route: 048
     Dates: start: 202311, end: 202311

REACTIONS (5)
  - Gastrointestinal haemorrhage [Recovered/Resolved]
  - Faeces discoloured [Unknown]
  - Haemoglobin decreased [Unknown]
  - Vascular stent thrombosis [Unknown]
  - Myocardial infarction [Unknown]

NARRATIVE: CASE EVENT DATE: 20231101
